FAERS Safety Report 6939398-9 (Version None)
Quarter: 2010Q3

REPORT INFORMATION
  Report Type: 
  Country: None (occurrence: None)
  Receive Date: 20100824
  Receipt Date: 20100101
  Transmission Date: 20110219
  Serious: No
  Sender: FDA-Public Use
  Company Number: A0860876A

PATIENT
  Age: 61 Year
  Sex: Female

DRUGS (4)
  1. ARZERRA [Suspect]
     Dosage: 300MG SEE DOSAGE TEXT
     Route: 042
     Dates: start: 20100101
  2. CHEMOTHERAPY [Suspect]
     Indication: PRODUCT USED FOR UNKNOWN INDICATION
     Route: 065
  3. BENADRYL [Concomitant]
  4. EPIPEN [Concomitant]

REACTIONS (5)
  - BACK PAIN [None]
  - BLOOD COUNT ABNORMAL [None]
  - EYE SWELLING [None]
  - INFUSION RELATED REACTION [None]
  - NASAL CONGESTION [None]
